FAERS Safety Report 4524424-7 (Version None)
Quarter: 2004Q4

REPORT INFORMATION
  Report Type: 
  Country: None (occurrence: None)
  Receive Date: 20041116
  Receipt Date: 20040910
  Transmission Date: 20050328
  Serious: Yes (Other)
  Sender: FDA-Public Use
  Company Number: PHEH2004US05786

PATIENT
  Age: 61 Year
  Sex: Female
  Weight: 59.4 kg

DRUGS (6)
  1. GLEEVEC [Suspect]
     Indication: GASTROINTESTINAL STROMAL TUMOUR
     Dosage: 400 MG, QD
     Dates: start: 20040219
  2. NORVASC [Suspect]
     Indication: HYPERTENSION
     Dosage: ORAL
     Route: 048
     Dates: start: 20040501
  3. HORMONES REPLACEMENT THERAPY (HORMONES) [Concomitant]
  4. PRILOSEC [Concomitant]
  5. LASIX [Concomitant]
  6. POTASSIUM (POTASSIUM) [Concomitant]

REACTIONS (10)
  - ACUTE GENERALISED EXANTHEMATOUS PUSTULOSIS [None]
  - ALOPECIA [None]
  - DRY SKIN [None]
  - HYPERSENSITIVITY [None]
  - HYPOAESTHESIA [None]
  - LOOSE STOOLS [None]
  - NAIL DISCOLOURATION [None]
  - NAUSEA [None]
  - OEDEMA [None]
  - RASH PRURITIC [None]
